FAERS Safety Report 4374398-7 (Version None)
Quarter: 2004Q2

REPORT INFORMATION
  Report Type: 
  Country: None (occurrence: None)
  Receive Date: 20040602
  Receipt Date: 20040324
  Transmission Date: 20050107
  Serious: No
  Sender: FDA-Public Use
  Company Number: 200416562BWH

PATIENT
  Age: 74 Year
  Sex: Male
  Weight: 70.3075 kg

DRUGS (4)
  1. LEVITRA [Suspect]
     Dosage: 10 MG TOTAL DAILY ORAL
     Route: 048
  2. LITHIUM CARBONATE [Concomitant]
  3. TYLENOL [Concomitant]
  4. MULTI-VITAMIN [Concomitant]

REACTIONS (1)
  - HEADACHE [None]
